FAERS Safety Report 17491853 (Version 1)
Quarter: 2020Q1

REPORT INFORMATION
  Report Type: Spontaneous
  Country: DE (occurrence: DE)
  Receive Date: 20200303
  Receipt Date: 20200303
  Transmission Date: 20200409
  Serious: Yes (Hospitalization, Other)
  Sender: FDA-Public Use
  Company Number: DE-MYLANLABS-2020M1022691

PATIENT
  Age: 54 Year
  Sex: Female
  Weight: 78 kg

DRUGS (13)
  1. PREGABALIN. [Concomitant]
     Active Substance: PREGABALIN
     Indication: PRODUCT USED FOR UNKNOWN INDICATION
     Dosage: 50 MG, BID (IN THE MORNING AND EVENING)
     Route: 065
  2. INSULIN GLARGINE [Concomitant]
     Active Substance: INSULIN GLARGINE
     Indication: PRODUCT USED FOR UNKNOWN INDICATION
     Dosage: UNK, 300 E/ML48 (IN THE NIGHT)
     Route: 065
  3. SIMVASTATIN. [Concomitant]
     Active Substance: SIMVASTATIN
     Indication: PRODUCT USED FOR UNKNOWN INDICATION
     Dosage: UNK UNK, QD
     Route: 065
  4. BISOPROLOL [Concomitant]
     Active Substance: BISOPROLOL
     Indication: PRODUCT USED FOR UNKNOWN INDICATION
     Dosage: 2.5 MG, BID (ONE IN THE MORNING AND HALF TABLET IN EVENING)
     Route: 065
  5. EMPAGLIFLOZIN W/METFORMIN HYDROCHLORIDE [Concomitant]
     Active Substance: EMPAGLIFLOZIN\METFORMIN HYDROCHLORIDE
     Indication: DIABETES MELLITUS
     Dosage: QD (HALF TABLET)
     Route: 065
  6. VALSARTAN. [Suspect]
     Active Substance: VALSARTAN
     Indication: HYPERTENSION
     Dosage: 160 MG, QD
     Route: 048
     Dates: start: 20140411, end: 20180710
  7. VALSACOR [Suspect]
     Active Substance: VALSARTAN
     Indication: PRODUCT USED FOR UNKNOWN INDICATION
     Dosage: UNK
     Route: 065
  8. INSULIN GLULISINE [Concomitant]
     Active Substance: INSULIN GLULISINE
     Indication: PRODUCT USED FOR UNKNOWN INDICATION
     Dosage: 100 DF (100 E/ML) PEN (FACTOR:2.5-2,25-2,25-2.0)
     Route: 065
  9. MAGNESIUM [Concomitant]
     Active Substance: MAGNESIUM
     Indication: PRODUCT USED FOR UNKNOWN INDICATION
     Dosage: 1 DF, QD
     Route: 048
  10. IBUPROFEN. [Concomitant]
     Active Substance: IBUPROFEN
     Indication: PAIN
     Dosage: 1 DF, TID
     Route: 065
     Dates: start: 20171208, end: 20171211
  11. VALSARTAN. [Suspect]
     Active Substance: VALSARTAN
     Indication: HYPERTENSION
     Dosage: 160 MG, QID
     Route: 048
     Dates: start: 20140411, end: 20180710
  12. VALSARTAN HEXAL [Suspect]
     Active Substance: VALSARTAN
     Indication: PRODUCT USED FOR UNKNOWN INDICATION
     Dosage: 1 DF, QD
     Route: 065
     Dates: start: 2013, end: 2018
  13. IBUPROFEN. [Concomitant]
     Active Substance: IBUPROFEN
     Dosage: 2 DOSAGE FORM, QD
     Route: 065
     Dates: start: 20171208, end: 20171211

REACTIONS (9)
  - Sleep apnoea syndrome [Unknown]
  - Upper respiratory tract infection [Not Recovered/Not Resolved]
  - Asthma [Unknown]
  - Snoring [Unknown]
  - Cough [Recovered/Resolved with Sequelae]
  - Arrhythmia [Unknown]
  - Chronic sinusitis [Not Recovered/Not Resolved]
  - Intraductal proliferative breast lesion [Recovered/Resolved with Sequelae]
  - Arthritis [Not Recovered/Not Resolved]

NARRATIVE: CASE EVENT DATE: 2014
